FAERS Safety Report 5179366-3 (Version None)
Quarter: 2006Q4

REPORT INFORMATION
  Report Type: 
  Country: None (occurrence: None)
  Receive Date: 20061219
  Receipt Date: 20060329
  Transmission Date: 20070319
  Serious: Yes (Death, Hospitalization)
  Sender: FDA-Public Use
  Company Number: NL-SANOFI-SYNTHELABO-F01200600918

PATIENT
  Sex: Male

DRUGS (5)
  1. CHLORTHALIDONE [Concomitant]
  2. CETUXIMAB [Suspect]
     Dosage: 550 MG
     Route: 041
     Dates: start: 20060316, end: 20060316
  3. BEVACIZUMAB [Suspect]
     Route: 041
     Dates: start: 20060309, end: 20060309
  4. CAPECITABINE [Suspect]
     Dosage: DAYS 1-14 (1250 MG/M2 AFTER CYCLE 6) 4000 MG
     Route: 048
     Dates: start: 20060309
  5. OXALIPLATIN [Suspect]
     Indication: COLORECTAL CANCER
     Route: 041
     Dates: start: 20060309, end: 20060309

REACTIONS (4)
  - ANASTOMOTIC COMPLICATION [None]
  - BACTERIAL INFECTION [None]
  - CARDIAC FAILURE [None]
  - SEPSIS [None]
